FAERS Safety Report 11415312 (Version 1)
Quarter: 2015Q3

REPORT INFORMATION
  Report Type: Spontaneous
  Country: US (occurrence: None)
  Receive Date: 20150824
  Receipt Date: 20150824
  Transmission Date: 20151125
  Serious: No
  Sender: FDA-Public Use
  Company Number: None

PATIENT
  Age: 48 Year
  Sex: Male

DRUGS (11)
  1. DUONEB [Concomitant]
     Active Substance: ALBUTEROL SULFATE\IPRATROPIUM BROMIDE
  2. CATAPRES [Concomitant]
     Active Substance: CLONIDINE HYDROCHLORIDE
  3. TUMS [Concomitant]
     Active Substance: CALCIUM CARBONATE
  4. TRAZODONE [Concomitant]
     Active Substance: TRAZODONE HYDROCHLORIDE
  5. OMEPRAZOLE. [Concomitant]
     Active Substance: OMEPRAZOLE
  6. STRATTERA [Concomitant]
     Active Substance: ATOMOXETINE HYDROCHLORIDE
  7. HARVONI [Suspect]
     Active Substance: LEDIPASVIR\SOFOSBUVIR
     Indication: CHRONIC HEPATITIS C
     Route: 048
  8. RISPERIDONE. [Concomitant]
     Active Substance: RISPERIDONE
  9. PROAIR HFA [Concomitant]
     Active Substance: ALBUTEROL SULFATE
  10. LOPERAMIDE [Concomitant]
     Active Substance: LOPERAMIDE
  11. GABAPENTIN. [Concomitant]
     Active Substance: GABAPENTIN

REACTIONS (1)
  - Diarrhoea [None]

NARRATIVE: CASE EVENT DATE: 20150820
